FAERS Safety Report 7487298-0 (Version None)
Quarter: 2011Q2

REPORT INFORMATION
  Report Type: 
  Country: None (occurrence: None)
  Receive Date: 20110518
  Receipt Date: 20101228
  Transmission Date: 20111010
  Serious: Yes (Hospitalization, Other)
  Sender: FDA-Public Use
  Company Number: US-BAYER-201029338NA

PATIENT
  Age: 18 Year
  Sex: Female
  Weight: 66.667 kg

DRUGS (10)
  1. ALLERGY SHOTS [Concomitant]
     Dosage: UNK UNK, OW
     Route: 030
  2. YAZ [Suspect]
     Indication: MENSTRUATION IRREGULAR
  3. NASACORT [Concomitant]
     Indication: HYPERSENSITIVITY
     Dosage: 55 MCG/24HR, QD
     Route: 045
     Dates: start: 20010901
  4. YAZ [Suspect]
     Indication: MUSCLE SPASMS
  5. ADVIL LIQUI-GELS [Concomitant]
     Indication: DYSMENORRHOEA
     Dosage: UNK UNK, QD
     Dates: start: 20060801
  6. YAZ [Suspect]
     Indication: ORAL CONTRACEPTION
     Dosage: UNK UNK, UNK
     Route: 048
     Dates: start: 20060827, end: 20070616
  7. ALLEGRA [Concomitant]
     Indication: HYPERSENSITIVITY
     Dosage: 180 MG, QD
     Route: 048
     Dates: start: 20010901
  8. VACCINES [Concomitant]
     Indication: IMMUNISATION
     Dosage: UNK
     Route: 030
     Dates: start: 20070323
  9. MULTIPLE VITAMINS [Concomitant]
  10. MIDOL [ACETYLSALICYLIC ACID,CAFFEINE,CINNAMEDRINE,PHENACETIN] [Concomitant]

REACTIONS (4)
  - PAIN [None]
  - SUFFOCATION FEELING [None]
  - PULMONARY EMBOLISM [None]
  - DYSPNOEA [None]
